FAERS Safety Report 7007212-1 (Version None)
Quarter: 2010Q3

REPORT INFORMATION
  Report Type: 
  Country: None (occurrence: None)
  Receive Date: 20100914
  Receipt Date: 20100909
  Transmission Date: 20110219
  Serious: Yes (Hospitalization, Disabling, Other)
  Sender: FDA-Public Use
  Company Number: 2009SP035995

PATIENT
  Age: 20 Year
  Sex: Female
  Weight: 86.1834 kg

DRUGS (3)
  1. NUVARING [Suspect]
     Indication: CONTRACEPTION
     Dates: start: 20060801, end: 20070101
  2. EXCEDRIN (MIGRAINE) [Concomitant]
  3. TYLENOL RAPID RELEASE [Concomitant]

REACTIONS (20)
  - ANXIETY [None]
  - CAESAREAN SECTION [None]
  - CEREBROVASCULAR ACCIDENT [None]
  - CONDITION AGGRAVATED [None]
  - DRUG EXPOSURE BEFORE PREGNANCY [None]
  - HEADACHE [None]
  - HEART RATE INCREASED [None]
  - HYPERTENSION [None]
  - HYPOAESTHESIA [None]
  - HYPOAESTHESIA FACIAL [None]
  - HYPOTHYROIDISM [None]
  - MIGRAINE [None]
  - MULTIPLE INJURIES [None]
  - MUSCULOSKELETAL CHEST PAIN [None]
  - PALPITATIONS [None]
  - PERIPARTUM CARDIOMYOPATHY [None]
  - PULMONARY EMBOLISM [None]
  - PYELONEPHRITIS [None]
  - SINUS TACHYCARDIA [None]
  - TRANSIENT ISCHAEMIC ATTACK [None]
